FAERS Safety Report 22279776 (Version 1)
Quarter: 2023Q2

REPORT INFORMATION
  Report Type: Spontaneous
  Country: SO (occurrence: SO)
  Receive Date: 20230503
  Receipt Date: 20230503
  Transmission Date: 20230722
  Serious: Yes (Other)
  Sender: FDA-Public Use
  Company Number: SO-GRUNENTHAL-2023-111035

PATIENT
  Age: 36 Year
  Sex: Male

DRUGS (1)
  1. TRAMADOL HYDROCHLORIDE [Suspect]
     Active Substance: TRAMADOL HYDROCHLORIDE
     Indication: Erectile dysfunction
     Dosage: 300 MILLIGRAM, 1/DAY
     Route: 065

REACTIONS (4)
  - Haemorrhagic stroke [Recovering/Resolving]
  - Basal ganglia haemorrhage [Recovering/Resolving]
  - Drug dependence [Unknown]
  - Drug effective for unapproved indication [Unknown]
